FAERS Safety Report 5408335-0 (Version None)
Quarter: 2007Q3

REPORT INFORMATION
  Report Type: 
  Country: None (occurrence: None)
  Receive Date: 20070806
  Receipt Date: 20070806
  Transmission Date: 20080115
  Serious: Yes (Hospitalization)
  Sender: FDA-Public Use
  Company Number: None

PATIENT
  Sex: Female
  Weight: 79 kg

DRUGS (1)
  1. TEMOZOLOMIDE [Suspect]
     Dosage: 5805 MG

REACTIONS (6)
  - BLOOD POTASSIUM DECREASED [None]
  - BLOOD PRESSURE SYSTOLIC INCREASED [None]
  - DEHYDRATION [None]
  - NEUTROPHIL COUNT DECREASED [None]
  - ORTHOSTATIC HYPOTENSION [None]
  - THROMBOCYTOPENIA [None]
